FAERS Safety Report 4956299-6 (Version None)
Quarter: 2006Q1

REPORT INFORMATION
  Report Type: 
  Country: None (occurrence: None)
  Receive Date: 20060323
  Receipt Date: 20060314
  Transmission Date: 20060701
  Serious: Yes (Other)
  Sender: FDA-Public Use
  Company Number: 2006-03-0724

PATIENT
  Age: 44 Year
  Sex: Female

DRUGS (6)
  1. CELESTONE [Suspect]
     Dosage: 0.5 MG QD
     Dates: start: 20060130, end: 20060202
  2. AVELOX [Suspect]
     Indication: BRONCHITIS ACUTE
     Dosage: 400 MG QD ORAL
     Route: 048
     Dates: start: 20060201, end: 20060203
  3. ASPIRIN [Concomitant]
  4. LEVOFLOXACIN [Concomitant]
  5. GURONSAN [Concomitant]
  6. PEPSIN [Concomitant]

REACTIONS (6)
  - ABASIA [None]
  - ANXIETY [None]
  - ASTHENIA [None]
  - BALANCE DISORDER [None]
  - BRONCHITIS ACUTE [None]
  - DIZZINESS [None]
